FAERS Safety Report 19435220 (Version 1)
Quarter: 2021Q2

REPORT INFORMATION
  Report Type: Spontaneous
  Country: US (occurrence: US)
  Receive Date: 20210617
  Receipt Date: 20210617
  Transmission Date: 20210717
  Serious: Yes (Other)
  Sender: FDA-Public Use
  Company Number: US-AUROBINDO-AUR-APL-2021-024894

PATIENT
  Age: 71 Year
  Sex: Female

DRUGS (4)
  1. TACRINE [Interacting]
     Active Substance: TACRINE
     Dosage: UNK
     Route: 065
  2. TACRINE [Interacting]
     Active Substance: TACRINE
     Dosage: 20 MILLIGRAM, FOUR TIMES/DAY
     Route: 065
  3. IBUPROFEN. [Suspect]
     Active Substance: IBUPROFEN
     Indication: ARTHRALGIA
     Dosage: 600 MILLIGRAM, DAILY
     Route: 065
  4. TACRINE [Interacting]
     Active Substance: TACRINE
     Indication: DEMENTIA ALZHEIMER^S TYPE
     Dosage: 40 MILLIGRAM, FOUR TIMES/DAY
     Route: 065

REACTIONS (2)
  - Drug interaction [Unknown]
  - Delirium [Recovered/Resolved]
